FAERS Safety Report 6430349-2 (Version None)
Quarter: 2009Q4

REPORT INFORMATION
  Report Type: 
  Country: None (occurrence: None)
  Receive Date: 20091106
  Receipt Date: 20091026
  Transmission Date: 20100525
  Serious: Yes (Hospitalization)
  Sender: FDA-Public Use
  Company Number: AU-ELI_LILLY_AND_COMPANY-AU200910006066

PATIENT
  Sex: Female
  Weight: 74.7 kg

DRUGS (11)
  1. PEMETREXED [Suspect]
     Indication: NON-SMALL CELL LUNG CANCER
     Dosage: 500 MG/M2, ON D1 EVERY 21 DAYS
     Route: 042
     Dates: start: 20090914
  2. PEMETREXED [Suspect]
     Dosage: REDUCED DOSE 75%
     Route: 042
  3. CISPLATIN [Suspect]
     Indication: NON-SMALL CELL LUNG CANCER
     Dosage: 75 MG/M2, ON D1 EVERY 21 DAYS
     Route: 042
     Dates: start: 20090914
  4. CISPLATIN [Suspect]
     Dosage: REDUCED DOSE 75%UNK, UNK
     Route: 042
  5. FOLIC ACID [Concomitant]
     Indication: PROPHYLAXIS
     Dosage: UNK, UNK
     Dates: start: 20091009
  6. VIT B12 [Concomitant]
     Indication: PROPHYLAXIS
     Dosage: UNK, UNK
     Dates: start: 20091009
  7. DEXAMETHASONE [Concomitant]
     Indication: PROPHYLAXIS
     Dosage: UNK, UNK
     Dates: start: 20091009, end: 20091015
  8. FUROSEMIDE [Concomitant]
  9. ASPIRIN [Concomitant]
  10. THIAMINE [Concomitant]
  11. PARACETAMOL [Concomitant]

REACTIONS (1)
  - PULMONARY EMBOLISM [None]
